FAERS Safety Report 23234114 (Version 1)
Quarter: 2023Q4

REPORT INFORMATION
  Report Type: Other
  Country: CA (occurrence: CA)
  Receive Date: 20231128
  Receipt Date: 20231128
  Transmission Date: 20240109
  Serious: Yes (Other)
  Sender: FDA-Public Use
  Company Number: CA-APOTEX-2023AP016889

PATIENT
  Age: 42 Year
  Sex: Female

DRUGS (9)
  1. FLUTICASONE [Suspect]
     Active Substance: FLUTICASONE
     Indication: Rhinitis allergic
     Dosage: UNK
     Route: 065
  2. FLUTICASONE [Suspect]
     Active Substance: FLUTICASONE
     Indication: Dermatitis atopic
  3. FLUTICASONE [Suspect]
     Active Substance: FLUTICASONE
     Indication: Asthma
  4. BETAMETHASONE [Suspect]
     Active Substance: BETAMETHASONE\BETAMETHASONE DIPROPIONATE
     Indication: Rhinitis allergic
     Dosage: UNK
     Route: 061
  5. BETAMETHASONE [Suspect]
     Active Substance: BETAMETHASONE\BETAMETHASONE DIPROPIONATE
     Indication: Dermatitis atopic
  6. BETAMETHASONE [Suspect]
     Active Substance: BETAMETHASONE\BETAMETHASONE DIPROPIONATE
     Indication: Asthma
  7. HYDROCORTISONE [Suspect]
     Active Substance: HYDROCORTISONE
     Indication: Rhinitis allergic
     Dosage: UNK
     Route: 065
  8. HYDROCORTISONE [Suspect]
     Active Substance: HYDROCORTISONE
     Indication: Dermatitis atopic
  9. HYDROCORTISONE [Suspect]
     Active Substance: HYDROCORTISONE
     Indication: Asthma

REACTIONS (1)
  - Condition aggravated [Recovering/Resolving]
